FAERS Safety Report 24463157 (Version 1)
Quarter: 2024Q4

REPORT INFORMATION
  Report Type: Report from Study
  Country: US (occurrence: US)
  Receive Date: 20241018
  Receipt Date: 20241018
  Transmission Date: 20250114
  Serious: No
  Sender: ROCHE
  Company Number: US-ROCHE-2368598

PATIENT
  Age: 28 Year
  Sex: Female
  Weight: 70.0 kg

DRUGS (3)
  1. XOLAIR [Suspect]
     Active Substance: OMALIZUMAB
     Indication: Asthma
     Dosage: LAST INJECTION; 25/APR/2019
     Route: 058
  2. CATHFLO ACTIVASE [Suspect]
     Active Substance: ALTEPLASE
     Indication: Acute respiratory distress syndrome
     Dosage: DATE OF SERVICES: 30/MAR/2024, 31/MAR/2024( AT 9:54 AM ANOTHER AT 11:00 AM), 01/APR/2024, 05/APR/202
     Route: 065
  3. CATHFLO ACTIVASE [Suspect]
     Active Substance: ALTEPLASE
     Indication: Oedema

REACTIONS (2)
  - No adverse event [Unknown]
  - Off label use [Unknown]
